FAERS Safety Report 5958205-4 (Version None)
Quarter: 2008Q4

REPORT INFORMATION
  Report Type: 
  Country: None (occurrence: None)
  Receive Date: 20081117
  Receipt Date: 20081103
  Transmission Date: 20090506
  Serious: Yes (Hospitalization)
  Sender: FDA-Public Use
  Company Number: 1000001660

PATIENT
  Age: 65 Year
  Sex: Male

DRUGS (13)
  1. ESCITALOPRAM [Suspect]
     Dosage: (20 MG), ORAL
     Route: 048
     Dates: start: 20080507
  2. LEVEMIR [Concomitant]
  3. NOVONORM [Concomitant]
  4. MEDIATOR [Concomitant]
  5. ALLOPURINOL [Concomitant]
  6. TRIATEC [Concomitant]
  7. KARDEGIC [Concomitant]
  8. PRAVASTATIN [Concomitant]
  9. ATENOLOL [Concomitant]
  10. LASIX [Concomitant]
  11. XATRAL [Concomitant]
  12. PROSCAR [Concomitant]
  13. NOCTAMIDE [Concomitant]

REACTIONS (6)
  - ARRHYTHMIA [None]
  - ATRIOVENTRICULAR BLOCK [None]
  - REFUSAL OF TREATMENT BY PATIENT [None]
  - SYNCOPE [None]
  - URINARY INCONTINENCE [None]
  - VENTRICULAR TACHYCARDIA [None]
